FAERS Safety Report 18882579 (Version 1)
Quarter: 2021Q1

REPORT INFORMATION
  Report Type: Spontaneous
  Country: US (occurrence: US)
  Receive Date: 20210212
  Receipt Date: 20210212
  Transmission Date: 20210420
  Serious: No
  Sender: FDA-Public Use
  Company Number: US-ELI_LILLY_AND_COMPANY-US202101013356

PATIENT
  Age: 65 Year
  Sex: Male

DRUGS (1)
  1. ZYPREXA [Suspect]
     Active Substance: OLANZAPINE
     Indication: PRODUCT USED FOR UNKNOWN INDICATION
     Dosage: UNK UNK, UNKNOWN
     Route: 048

REACTIONS (6)
  - Erectile dysfunction [Not Recovered/Not Resolved]
  - Blood arsenic increased [Not Recovered/Not Resolved]
  - Extrapyramidal disorder [Not Recovered/Not Resolved]
  - Withdrawal syndrome [Unknown]
  - Tardive dyskinesia [Not Recovered/Not Resolved]
  - Toxicologic test abnormal [Not Recovered/Not Resolved]
